APPROVED DRUG PRODUCT: NAPROXEN
Active Ingredient: NAPROXEN
Strength: 500MG
Dosage Form/Route: TABLET, DELAYED RELEASE;ORAL
Application: A075337 | Product #002
Applicant: PLIVA INC
Approved: May 26, 1999 | RLD: No | RS: No | Type: DISCN